FAERS Safety Report 7964262-6 (Version None)
Quarter: 2011Q4

REPORT INFORMATION
  Report Type: 
  Country: None (occurrence: None)
  Receive Date: 20111206
  Receipt Date: 20111125
  Transmission Date: 20120403
  Serious: Yes (Hospitalization)
  Sender: FDA-Public Use
  Company Number: 2011MA017129

PATIENT
  Age: 36 Year
  Sex: Female

DRUGS (5)
  1. PHENYTOIN [Suspect]
     Indication: CONVULSION
     Dosage: 1125 MG;X1;IV
     Route: 042
     Dates: start: 20110116, end: 20110116
  2. PREGABALIN [Concomitant]
  3. FOLIC ACID [Concomitant]
  4. DIAZEPAM [Suspect]
     Indication: CONVULSION
     Dosage: 10 MG;X1;IV
     Route: 042
     Dates: start: 20110116, end: 20110116
  5. LEVETIRACETAM [Concomitant]

REACTIONS (1)
  - THROMBOPHLEBITIS [None]
